FAERS Safety Report 15212017 (Version 2)
Quarter: 2018Q3

REPORT INFORMATION
  Report Type: Spontaneous
  Country: ES (occurrence: ES)
  Receive Date: 20180730
  Receipt Date: 20180816
  Transmission Date: 20181010
  Serious: Yes (Other)
  Sender: FDA-Public Use
  Company Number: ES-STRIDES ARCOLAB LIMITED-2018SP006281

PATIENT

DRUGS (8)
  1. PERGOLIDE [Concomitant]
     Active Substance: PERGOLIDE
     Indication: PARKINSON^S DISEASE
     Dosage: UNK
     Route: 065
     Dates: start: 1998
  2. BOTULINUM TOXIN [Concomitant]
     Active Substance: BOTULINUM TOXIN NOS
     Indication: ON AND OFF PHENOMENON
  3. LEVODOPA [Concomitant]
     Active Substance: LEVODOPA
     Dosage: UNK (EARLY IN THE MORNING)
     Route: 065
  4. BROMOCRIPTINE [Concomitant]
     Active Substance: BROMOCRIPTINE
     Indication: PARKINSON^S DISEASE
     Dosage: UNK
     Route: 065
  5. LEVODOPA [Concomitant]
     Active Substance: LEVODOPA
     Indication: PARKINSON^S DISEASE
     Dosage: UNK
     Route: 065
     Dates: start: 1998
  6. AMANTADINE HYDROCHLORIDE. [Suspect]
     Active Substance: AMANTADINE HYDROCHLORIDE
     Indication: BRADYKINESIA
     Dosage: UNK
     Route: 065
     Dates: start: 1998
  7. DOMPERIDONE [Suspect]
     Active Substance: DOMPERIDONE
     Indication: EPIGASTRIC DISCOMFORT
     Dosage: UNK
     Route: 065
     Dates: start: 1998
  8. BOTULINUM TOXIN [Concomitant]
     Active Substance: BOTULINUM TOXIN NOS
     Indication: DYSKINESIA
     Dosage: UNK
     Route: 065

REACTIONS (2)
  - Therapy partial responder [Unknown]
  - Off label use [Unknown]
